FAERS Safety Report 6530903-3 (Version None)
Quarter: 2010Q1

REPORT INFORMATION
  Report Type: 
  Country: None (occurrence: None)
  Receive Date: 20100108
  Receipt Date: 20090527
  Transmission Date: 20100710
  Serious: No
  Sender: FDA-Public Use
  Company Number: A0786454A

PATIENT
  Age: 55 Year
  Sex: Female

DRUGS (8)
  1. LOVAZA [Suspect]
     Indication: HIGH DENSITY LIPOPROTEIN DECREASED
     Dosage: 4G PER DAY
     Route: 048
     Dates: start: 20090401
  2. OXYCODONE [Concomitant]
  3. SKELAXIN [Concomitant]
  4. SYNTHROID [Concomitant]
  5. DICLOFENAC SODIUM [Concomitant]
  6. SIMVASTATIN [Concomitant]
  7. OMEPRAZOLE [Concomitant]
  8. FENTANYL CITRATE [Concomitant]

REACTIONS (4)
  - ADVERSE EVENT [None]
  - FURUNCLE [None]
  - SKIN ULCER [None]
  - VAGINAL ULCERATION [None]
